FAERS Safety Report 15695396 (Version 1)
Quarter: 2018Q4

REPORT INFORMATION
  Report Type: Spontaneous
  Country: US (occurrence: US)
  Receive Date: 20181206
  Receipt Date: 20181206
  Transmission Date: 20190205
  Serious: No
  Sender: FDA-Public Use
  Company Number: US-ENDO PHARMACEUTICALS INC-2018-035958

PATIENT
  Sex: Male
  Weight: 83.9 kg

DRUGS (5)
  1. XIAFLEX [Suspect]
     Active Substance: COLLAGENASE CLOSTRIDIUM HISTOLYTICUM
     Dosage: CYCLE 3, INJECTION 1 AND 2
     Route: 065
  2. XIAFLEX [Suspect]
     Active Substance: COLLAGENASE CLOSTRIDIUM HISTOLYTICUM
     Dosage: CYCLE 2, INJECTION 1 AND 2
     Route: 065
  3. MEN^S DAILY ONE [Concomitant]
     Indication: PRODUCT USED FOR UNKNOWN INDICATION
  4. TESTOSTERONE. [Concomitant]
     Active Substance: TESTOSTERONE
     Indication: BLOOD TESTOSTERONE DECREASED
  5. XIAFLEX [Suspect]
     Active Substance: COLLAGENASE CLOSTRIDIUM HISTOLYTICUM
     Indication: PEYRONIE^S DISEASE
     Dosage: CYCLE 1, INJECTION 1 AND 2
     Route: 065

REACTIONS (1)
  - Drug ineffective [Unknown]
